FAERS Safety Report 10162308 (Version 2)
Quarter: 2014Q2

REPORT INFORMATION
  Report Type: Spontaneous
  Country: BR (occurrence: BR)
  Receive Date: 20140509
  Receipt Date: 20140618
  Transmission Date: 20141212
  Serious: No
  Sender: FDA-Public Use
  Company Number: BR-ASTRAZENECA-2014SE30724

PATIENT
  Age: 602 Month
  Sex: Male

DRUGS (4)
  1. CRESTOR [Suspect]
     Indication: STENT PLACEMENT
     Route: 048
     Dates: start: 201403, end: 201403
  2. CRESTOR [Suspect]
     Indication: BLOOD CHOLESTEROL INCREASED
     Route: 048
     Dates: start: 201403, end: 201403
  3. CRESTOR [Suspect]
     Indication: STENT PLACEMENT
     Route: 048
     Dates: start: 20140423, end: 201405
  4. CRESTOR [Suspect]
     Indication: BLOOD CHOLESTEROL INCREASED
     Route: 048
     Dates: start: 20140423, end: 201405

REACTIONS (1)
  - Abdominal pain [Recovered/Resolved]
